FAERS Safety Report 4503798-7 (Version None)
Quarter: 2004Q4

REPORT INFORMATION
  Report Type: 
  Country: None (occurrence: None)
  Receive Date: 20041115
  Receipt Date: 20041101
  Transmission Date: 20050328
  Serious: Yes (Life-Threatening, Other)
  Sender: FDA-Public Use
  Company Number: 2004-UK-01122UK

PATIENT
  Age: 91 Year
  Sex: 0
  Weight: 50 kg

DRUGS (1)
  1. MORPHINE SULFATE [Suspect]
     Dosage: 12.5 ML THREE TIMES DAILY (12.5

REACTIONS (2)
  - ACCIDENTAL OVERDOSE [None]
  - SOMNOLENCE [None]
